FAERS Safety Report 22104233 (Version 1)
Quarter: 2023Q1

REPORT INFORMATION
  Report Type: Spontaneous
  Country: US (occurrence: US)
  Receive Date: 20230316
  Receipt Date: 20230316
  Transmission Date: 20230418
  Serious: No
  Sender: FDA-Public Use
  Company Number: US-SMITH AND NEPHEW, INC-2022SMT00040

PATIENT
  Age: 79 Year
  Sex: Female
  Weight: 110.66 kg

DRUGS (9)
  1. COLLAGENASE SANTYL [Suspect]
     Active Substance: COLLAGENASE CLOSTRIDIUM HISTOLYTICUM
     Indication: Skin ulcer
     Dosage: SMALL AMOUNT TO COVER THE WOUND, 1X/DAY, ON THE LEFT OUTER CALF
     Route: 061
     Dates: start: 20220302, end: 20220303
  2. ASPIRIN [Concomitant]
     Active Substance: ASPIRIN
  3. TUMS [Concomitant]
     Active Substance: CALCIUM CARBONATE
  4. COZAAR [Concomitant]
     Active Substance: LOSARTAN POTASSIUM
  5. LOVASTATIN [Concomitant]
     Active Substance: LOVASTATIN
  6. MELOXICAM [Concomitant]
     Active Substance: MELOXICAM
  7. METOPROLOL [Concomitant]
     Active Substance: METOPROLOL
  8. VITAMINS [Concomitant]
     Active Substance: VITAMINS
  9. MINERALS\VITAMINS [Concomitant]
     Active Substance: MINERALS\VITAMINS

REACTIONS (1)
  - Drug hypersensitivity [Recovered/Resolved]

NARRATIVE: CASE EVENT DATE: 20220301
